FAERS Safety Report 9468595 (Version 3)
Quarter: 2013Q3

REPORT INFORMATION
  Report Type: Spontaneous
  Country: TR (occurrence: TR)
  Receive Date: 20130821
  Receipt Date: 20130917
  Transmission Date: 20140515
  Serious: Yes (Other)
  Sender: FDA-Public Use
  Company Number: TR-ALLERGAN-1311661US

PATIENT
  Age: 58 Year
  Sex: Female
  Weight: 70 kg

DRUGS (4)
  1. OZURDEX [Suspect]
     Indication: MACULAR OEDEMA
     Dosage: 0.7 MG, SINGLE
     Route: 031
     Dates: start: 20130729, end: 20130729
  2. COSOPT [Concomitant]
  3. XALATAN [Concomitant]
  4. ALPHAGAN %0.2 G?Z DAMLAS? [Concomitant]

REACTIONS (3)
  - Corneal striae [Recovering/Resolving]
  - Corneal oedema [Recovering/Resolving]
  - Device dislocation [Unknown]
